FAERS Safety Report 9524766 (Version 1)
Quarter: 2013Q1

REPORT INFORMATION
  Report Type: Spontaneous
  Country: US (occurrence: None)
  Receive Date: 20130305
  Receipt Date: 20130305
  Transmission Date: 20140127
  Serious: Yes (Hospitalization)
  Sender: FDA-Public Use
  Company Number: 163-21880-12021936

PATIENT
  Age: 83 Year
  Sex: Male
  Weight: 68.04 kg

DRUGS (21)
  1. REVLIMID [Suspect]
     Indication: PLASMA CELL MYELOMA
     Route: 048
     Dates: start: 20080930
  2. ASPIRIN (ACETYLSALICYLIC ACID) [Concomitant]
  3. CENTRUM SILVER [Concomitant]
  4. CO-Q10 (UBIDECARENONE) [Concomitant]
  5. FISH OIL [Concomitant]
  6. FLOMAX [Concomitant]
  7. FUROSEMIDE [Concomitant]
  8. LOPRESSOR (METOPROLOL TARTRATE) [Concomitant]
  9. LYRICA (PREGABALIN) [Concomitant]
  10. MAGNESIUM [Concomitant]
  11. MELOXICAM [Concomitant]
  12. METHADONE [Concomitant]
  13. NIASPAN (NICOTINIC ACID) [Concomitant]
  14. PANTOPRAZOLE [Concomitant]
  15. PLAVIX (CLOPIDOGREL SULFATE) [Concomitant]
  16. RITALIN (METHYLPHENIDATE HYDROCHLORIDE) [Concomitant]
  17. SELENIUM [Concomitant]
  18. VITAMIN C [Concomitant]
  19. VITAMIN D3 (COLECALCIFEROL) [Concomitant]
  20. ZOCOR (SIMVASTATIN) [Concomitant]
  21. DECADRON (DEXAMETHASONE) [Concomitant]

REACTIONS (1)
  - Pneumonia respiratory syncytial viral [None]
